FAERS Safety Report 9592001 (Version 2)
Quarter: 2013Q4

REPORT INFORMATION
  Report Type: Report from Study
  Country: SE (occurrence: SE)
  Receive Date: 20131004
  Receipt Date: 20131108
  Transmission Date: 20140711
  Serious: Yes (Death, Hospitalization)
  Sender: FDA-Public Use
  Company Number: SE-AMGEN-SWECT2013069513

PATIENT
  Age: 71 Year
  Sex: Male

DRUGS (2)
  1. ETANERCEPT [Suspect]
     Indication: RHEUMATOID ARTHRITIS
     Dosage: 50 MG, WEEKLY
     Route: 058
     Dates: start: 20110228, end: 20130913
  2. PREDNISOLON                        /00016201/ [Concomitant]
     Dosage: 5 MG, UNK
     Dates: start: 20110228

REACTIONS (1)
  - Pulmonary fibrosis [Fatal]
